FAERS Safety Report 16406228 (Version 2)
Quarter: 2020Q2

REPORT INFORMATION
  Report Type: Spontaneous
  Country: US (occurrence: US)
  Receive Date: 20190607
  Receipt Date: 20200617
  Transmission Date: 20200713
  Serious: Yes (Hospitalization)
  Sender: FDA-Public Use
  Company Number: US-ALLERGAN-1847808US

PATIENT
  Age: 21 Year
  Sex: Female
  Weight: 81.18 kg

DRUGS (12)
  1. VIBERZI [Suspect]
     Active Substance: ELUXADOLINE
     Indication: IRRITABLE BOWEL SYNDROME
     Dosage: ACTUAL DOSE: ONE 75 MG DOSE
     Route: 048
     Dates: start: 20161007, end: 20161007
  2. ALBUTEROL. [Concomitant]
     Active Substance: ALBUTEROL
     Dosage: 2 DF, QID
     Route: 055
  3. CARDIZEM CD [Concomitant]
     Active Substance: DILTIAZEM HYDROCHLORIDE
     Indication: MIGRAINE PROPHYLAXIS
     Dosage: 120 MG, QD
     Route: 048
  4. STIMATE [Concomitant]
     Active Substance: DESMOPRESSIN ACETATE
     Dosage: 1.5 MG/ML, UNK
  5. JUNEL FE 1/20 [Concomitant]
     Active Substance: ETHINYL ESTRADIOL\NORETHINDRONE ACETATE
     Dosage: 1 DF, QD
     Route: 048
  6. AMITRIPTYLINE HCL [Concomitant]
     Active Substance: AMITRIPTYLINE
     Dosage: 10 MG, UNK
  7. ONDANSETRON [Concomitant]
     Active Substance: ONDANSETRON
  8. IMITREX [Concomitant]
     Active Substance: SUMATRIPTAN SUCCINATE
     Indication: MIGRAINE
     Dosage: 50 MG, PRN
     Route: 048
  9. PROAIR HFA [Concomitant]
     Active Substance: ALBUTEROL SULFATE
  10. CIPROFLOXACIN HYDROCHLORIDE. [Concomitant]
     Active Substance: CIPROFLOXACIN HYDROCHLORIDE
     Dosage: 500 MG, BID
     Route: 048
  11. TROKENDI XR [Concomitant]
     Active Substance: TOPIRAMATE
     Dosage: 50 MG, QHS
     Route: 048
  12. INDERAL LA [Concomitant]
     Active Substance: PROPRANOLOL HYDROCHLORIDE
     Dosage: UNK

REACTIONS (6)
  - Anxiety [Not Recovered/Not Resolved]
  - Depressed mood [Not Recovered/Not Resolved]
  - Pain [Not Recovered/Not Resolved]
  - Liver function test increased [Unknown]
  - Pancreatitis acute [Recovering/Resolving]
  - Gastroenteritis viral [Unknown]

NARRATIVE: CASE EVENT DATE: 201610
